FAERS Safety Report 15107477 (Version 1)
Quarter: 2018Q3

REPORT INFORMATION
  Report Type: Report from Study
  Country: FR (occurrence: FR)
  Receive Date: 20180704
  Receipt Date: 20180704
  Transmission Date: 20181010
  Serious: Yes (Hospitalization, Other)
  Sender: FDA-Public Use
  Company Number: FR-BRISTOL-MYERS SQUIBB COMPANY-BMS-2017-121925

PATIENT
  Sex: Male
  Weight: 50 kg

DRUGS (1)
  1. NIVOLUMAB [Suspect]
     Active Substance: NIVOLUMAB
     Indication: SQUAMOUS CELL CARCINOMA OF HEAD AND NECK
     Dosage: UNK
     Route: 065
     Dates: start: 20171116

REACTIONS (4)
  - Malignant neoplasm progression [Unknown]
  - General physical health deterioration [Unknown]
  - Lymphangiosis carcinomatosa [Unknown]
  - Lung infection [Unknown]
